FAERS Safety Report 4297258-9 (Version None)
Quarter: 2004Q1

REPORT INFORMATION
  Report Type: 
  Country: None (occurrence: None)
  Receive Date: 20040213
  Receipt Date: 20040129
  Transmission Date: 20041129
  Serious: Yes (Hospitalization)
  Sender: FDA-Public Use
  Company Number: S04-USA-00471-01

PATIENT
  Age: 43 Year
  Sex: Female

DRUGS (5)
  1. LEXAPRO [Suspect]
     Indication: DEPRESSION
  2. PREMARIN [Concomitant]
  3. SKELAXIN [Concomitant]
  4. TIZANIDINE HCL [Concomitant]
  5. PERCOCET [Concomitant]

REACTIONS (11)
  - BLOOD MAGNESIUM DECREASED [None]
  - BRONCHOSPASM [None]
  - CHEST DISCOMFORT [None]
  - FLUSHING [None]
  - LOSS OF CONSCIOUSNESS [None]
  - MYOCLONUS [None]
  - NAUSEA [None]
  - OEDEMA PERIPHERAL [None]
  - RESTLESSNESS [None]
  - SWELLING FACE [None]
  - TREMOR [None]
